FAERS Safety Report 4808882-6 (Version None)
Quarter: 2005Q4

REPORT INFORMATION
  Report Type: 
  Country: None (occurrence: None)
  Receive Date: 20051021
  Receipt Date: 20031119
  Transmission Date: 20060501
  Serious: Yes (Hospitalization)
  Sender: FDA-Public Use
  Company Number: DE_031112396

PATIENT
  Sex: Male

DRUGS (2)
  1. ZYPREXA [Suspect]
     Dates: start: 20031001, end: 20031101
  2. HEPARIN [Concomitant]

REACTIONS (3)
  - GENERAL PHYSICAL CONDITION ABNORMAL [None]
  - LEUKOPENIA [None]
  - PLATELET COUNT DECREASED [None]
